FAERS Safety Report 8584422-3 (Version None)
Quarter: 2012Q3

REPORT INFORMATION
  Report Type: 
  Country: None (occurrence: None)
  Receive Date: 20120810
  Receipt Date: 20120731
  Transmission Date: 20120928
  Serious: Yes (Hospitalization)
  Sender: FDA-Public Use
  Company Number: CH-BRISTOL-MYERS SQUIBB COMPANY-16833394

PATIENT
  Age: 61 Year
  Sex: Male

DRUGS (4)
  1. CETUXIMAB [Suspect]
     Indication: PHARYNGEAL CANCER STAGE UNSPECIFIED
     Dosage: LOADING DOSE:600MG THEN 400MG
  2. CISPLATIN [Suspect]
     Indication: PHARYNGEAL CANCER STAGE UNSPECIFIED
  3. DOCETAXEL [Suspect]
     Indication: PHARYNGEAL CANCER STAGE UNSPECIFIED
  4. FLUOROURACIL [Suspect]
     Indication: PHARYNGEAL CANCER STAGE UNSPECIFIED

REACTIONS (2)
  - DERMATITIS [None]
  - INTERSTITIAL LUNG DISEASE [None]
